FAERS Safety Report 19305419 (Version 1)
Quarter: 2021Q2

REPORT INFORMATION
  Report Type: Spontaneous
  Country: HR (occurrence: HR)
  Receive Date: 20210525
  Receipt Date: 20210525
  Transmission Date: 20210717
  Serious: Yes (Other)
  Sender: FDA-Public Use
  Company Number: HR-PFIZER INC-2021556660

PATIENT
  Age: 54 Year
  Sex: Female

DRUGS (5)
  1. RESOCHIN [Concomitant]
     Active Substance: NIFEDIPINE
     Dosage: 250 MG, 1X/DAY
  2. DECORTIN [Concomitant]
     Active Substance: PREDNISONE
     Dosage: 5?10MG
  3. XELJANZ [Suspect]
     Active Substance: TOFACITINIB CITRATE
     Indication: RHEUMATOID ARTHRITIS
     Dosage: UNK
     Dates: start: 20201015
  4. IBUPROFEN. [Concomitant]
     Active Substance: IBUPROFEN
     Dosage: UNK, AS NEEDED
  5. DECORTIN [Concomitant]
     Active Substance: PREDNISONE
     Dosage: 5 MG, 2X/DAY

REACTIONS (4)
  - Pyrexia [Recovered/Resolved]
  - Respiratory tract infection [Recovered/Resolved]
  - Oropharyngeal pain [Recovered/Resolved]
  - Fatigue [Recovered/Resolved]

NARRATIVE: CASE EVENT DATE: 202012
